APPROVED DRUG PRODUCT: BUTALBITAL, ACETAMINOPHEN AND CAFFEINE
Active Ingredient: ACETAMINOPHEN; BUTALBITAL; CAFFEINE
Strength: 300MG;50MG;40MG
Dosage Form/Route: CAPSULE;ORAL
Application: A206615 | Product #001
Applicant: KEY THERAPEUTICS LLC
Approved: Aug 4, 2017 | RLD: No | RS: No | Type: DISCN